FAERS Safety Report 26097622 (Version 1)
Quarter: 2025Q4

REPORT INFORMATION
  Report Type: Spontaneous
  Country: US (occurrence: US)
  Receive Date: 20251127
  Receipt Date: 20251127
  Transmission Date: 20260118
  Serious: Yes (Other)
  Sender: MALLINCKRODT
  Company Number: US-MALLINCKRODT-MNK202507329

PATIENT
  Sex: Female

DRUGS (1)
  1. CORTICOTROPIN [Suspect]
     Active Substance: CORTICOTROPIN
     Indication: Pulmonary sarcoidosis
     Dosage: 40 UNITS
     Route: 058

REACTIONS (4)
  - Adrenal insufficiency [Unknown]
  - Weight decreased [Unknown]
  - Blood glucose increased [Unknown]
  - Weight increased [Unknown]
